FAERS Safety Report 18010486 (Version 4)
Quarter: 2020Q3

REPORT INFORMATION
  Report Type: Spontaneous
  Country: CL (occurrence: CL)
  Receive Date: 20200711
  Receipt Date: 20200807
  Transmission Date: 20201103
  Serious: Yes (Death, Life-Threatening, Hospitalization, Other)
  Sender: FDA-Public Use
  Company Number: NVSC2020CL193688

PATIENT
  Age: 12 Year
  Sex: Male
  Weight: 56.9 kg

DRUGS (6)
  1. IMATINIB. [Concomitant]
     Active Substance: IMATINIB MESYLATE
     Indication: PRODUCT USED FOR UNKNOWN INDICATION
     Dosage: UNK
     Route: 065
  2. CYTARABINE. [Suspect]
     Active Substance: CYTARABINE
     Indication: ACUTE LYMPHOCYTIC LEUKAEMIA
     Dosage: 75 MG
     Route: 042
     Dates: start: 20200624, end: 20200626
  3. GLIVEC [Suspect]
     Active Substance: IMATINIB MESYLATE
     Dosage: 300 MG
     Route: 048
     Dates: start: 20200522, end: 20200626
  4. CYCLOPHOSPHAMIDE. [Suspect]
     Active Substance: CYCLOPHOSPHAMIDE
     Indication: ACUTE LYMPHOCYTIC LEUKAEMIA
     Dosage: 1630 MG
     Route: 042
     Dates: start: 20200615, end: 20200615
  5. GLIVEC [Suspect]
     Active Substance: IMATINIB MESYLATE
     Indication: ACUTE LYMPHOCYTIC LEUKAEMIA
     Dosage: 600 MG(1X400MG+2X100MG)
     Route: 065
  6. MERCAPTOPURINE. [Suspect]
     Active Substance: MERCAPTOPURINE
     Indication: ACUTE LYMPHOCYTIC LEUKAEMIA
     Dosage: 100 MG
     Route: 048
     Dates: start: 20200615, end: 20200626

REACTIONS (8)
  - Febrile neutropenia [Fatal]
  - Endocarditis [Unknown]
  - Anuria [Unknown]
  - Face oedema [Unknown]
  - Tachycardia [Unknown]
  - Pyrexia [Unknown]
  - Trichosporon infection [Fatal]
  - Fungal skin infection [Unknown]

NARRATIVE: CASE EVENT DATE: 20200626
